FAERS Safety Report 7372983-1 (Version None)
Quarter: 2011Q1

REPORT INFORMATION
  Report Type: 
  Country: None (occurrence: None)
  Receive Date: 20110324
  Receipt Date: 20110321
  Transmission Date: 20110831
  Serious: Yes (Other)
  Sender: FDA-Public Use
  Company Number: NL-PFIZER INC-2011062878

PATIENT
  Age: 66 Year
  Sex: Female

DRUGS (1)
  1. CABERGOLINE [Suspect]
     Dosage: UNK

REACTIONS (1)
  - EMPTY SELLA SYNDROME [None]
